FAERS Safety Report 12979642 (Version 4)
Quarter: 2017Q3

REPORT INFORMATION
  Report Type: Spontaneous
  Country: NO (occurrence: NO)
  Receive Date: 20161128
  Receipt Date: 20170922
  Transmission Date: 20171127
  Serious: Yes (Hospitalization)
  Sender: FDA-Public Use
  Company Number: NO-PFIZER INC-2016546365

PATIENT
  Age: 64 Year
  Sex: Male

DRUGS (1)
  1. SUTENT [Suspect]
     Active Substance: SUNITINIB MALATE
     Indication: RENAL CELL CARCINOMA
     Dosage: UNK, BUT SEVERAL SHORT PERIODS WITHOUT BECAUSE OF THE ANAL FISSURE
     Dates: start: 201501, end: 201703

REACTIONS (6)
  - Anal abscess [Recovered/Resolved]
  - Pancytopenia [Recovering/Resolving]
  - Fistula [Recovered/Resolved]
  - Herpes zoster [Unknown]
  - Anorectal disorder [Unknown]
  - Hypothyroidism [Unknown]

NARRATIVE: CASE EVENT DATE: 201602
